FAERS Safety Report 20173067 (Version 2)
Quarter: 2022Q4

REPORT INFORMATION
  Report Type: Spontaneous
  Country: GB (occurrence: GB)
  Receive Date: 20211211
  Receipt Date: 20221107
  Transmission Date: 20230113
  Serious: Yes (Other)
  Sender: FDA-Public Use
  Company Number: GB-NOVARTISPH-NVSC2007GB000902

PATIENT
  Age: 54 Year
  Sex: Male

DRUGS (516)
  1. SIMVASTATIN [Suspect]
     Active Substance: SIMVASTATIN
     Indication: Ill-defined disorder
     Dosage: 40 MG, QD
     Route: 065
  2. SIMVASTATIN [Suspect]
     Active Substance: SIMVASTATIN
     Indication: Pneumonia
     Dosage: 40 MG, QD
     Route: 042
     Dates: start: 2006
  3. SIMVASTATIN [Suspect]
     Active Substance: SIMVASTATIN
     Dosage: 40 MG, QD
     Route: 042
     Dates: start: 2006
  4. SIMVASTATIN [Suspect]
     Active Substance: SIMVASTATIN
     Dosage: 40 MG, QD
     Route: 042
  5. SIMVASTATIN [Suspect]
     Active Substance: SIMVASTATIN
     Dosage: 40 MG, QD
     Route: 042
     Dates: start: 2006
  6. SIMVASTATIN [Suspect]
     Active Substance: SIMVASTATIN
     Dosage: 40 MG, QD
     Route: 065
     Dates: start: 2006
  7. SIMVASTATIN [Suspect]
     Active Substance: SIMVASTATIN
     Dosage: 40 MG, QD
     Route: 065
  8. DIPRIVAN [Suspect]
     Active Substance: PROPOFOL
     Indication: Ill-defined disorder
     Dosage: UNK
     Route: 042
     Dates: start: 2006
  9. DIPRIVAN [Suspect]
     Active Substance: PROPOFOL
     Indication: Pneumonia
     Dosage: UNK
     Route: 042
  10. DIPRIVAN [Suspect]
     Active Substance: PROPOFOL
     Dosage: INFUSION DRUG DOSAGE FORM 333
     Route: 065
     Dates: start: 2006
  11. DIPRIVAN [Suspect]
     Active Substance: PROPOFOL
     Dosage: UNK
     Route: 042
  12. DIPRIVAN [Suspect]
     Active Substance: PROPOFOL
     Dosage: UNK
     Route: 065
     Dates: start: 2006
  13. AMOXICILLIN [Suspect]
     Active Substance: AMOXICILLIN
     Indication: Ill-defined disorder
     Dosage: 1 G, TID
     Route: 042
     Dates: start: 20060913
  14. AMOXICILLIN [Suspect]
     Active Substance: AMOXICILLIN
     Indication: Pneumonia
     Dosage: 1 G 3/1 DAYS
     Route: 042
  15. AMOXICILLIN [Suspect]
     Active Substance: AMOXICILLIN
     Dosage: 1 G, TID
     Route: 042
  16. AMOXICILLIN [Suspect]
     Active Substance: AMOXICILLIN
     Dosage: TIME INTERVAL
     Route: 042
  17. AMOXICILLIN [Suspect]
     Active Substance: AMOXICILLIN
     Dosage: 250 MG, TID
     Route: 042
     Dates: start: 20060913
  18. AMOXICILLIN [Suspect]
     Active Substance: AMOXICILLIN
     Dosage: UNK
     Route: 065
  19. AMOXICILLIN [Suspect]
     Active Substance: AMOXICILLIN
     Dosage: 3 G, TID
     Route: 042
     Dates: start: 20060913
  20. AMOXICILLIN [Suspect]
     Active Substance: AMOXICILLIN
     Dosage: 250 MG
     Route: 042
     Dates: start: 20060913
  21. AMOXICILLIN [Suspect]
     Active Substance: AMOXICILLIN
     Dosage: 250 MG
     Route: 048
     Dates: start: 20060913
  22. AMOXICILLIN [Suspect]
     Active Substance: AMOXICILLIN
     Dosage: 250 MG
     Route: 048
     Dates: start: 20060913
  23. AMOXICILLIN [Suspect]
     Active Substance: AMOXICILLIN
     Dosage: 1 G
     Route: 042
  24. AMOXICILLIN [Suspect]
     Active Substance: AMOXICILLIN
     Dosage: UNK G
     Route: 042
  25. AMOXICILLIN [Suspect]
     Active Substance: AMOXICILLIN
     Dosage: 1 G, TID
     Route: 042
  26. AMOXICILLIN [Suspect]
     Active Substance: AMOXICILLIN
     Dosage: UNK
     Route: 065
  27. CIPROFLOXACIN LACTATE [Suspect]
     Active Substance: CIPROFLOXACIN LACTATE
     Indication: Product used for unknown indication
     Dosage: UNK
     Route: 065
  28. DOBUTAMINE [Suspect]
     Active Substance: DOBUTAMINE HYDROCHLORIDE
     Indication: Ill-defined disorder
     Dosage: UNK
     Route: 041
     Dates: start: 2006
  29. DOBUTAMINE [Suspect]
     Active Substance: DOBUTAMINE HYDROCHLORIDE
     Indication: Pneumonia
     Dosage: UNK
     Route: 041
     Dates: start: 2006
  30. DOBUTAMINE [Suspect]
     Active Substance: DOBUTAMINE HYDROCHLORIDE
     Dosage: UNK
     Route: 041
     Dates: start: 2006
  31. DOBUTAMINE [Suspect]
     Active Substance: DOBUTAMINE HYDROCHLORIDE
     Dosage: UNK
     Route: 065
  32. ACETAMINOPHEN [Suspect]
     Active Substance: ACETAMINOPHEN
     Indication: Ill-defined disorder
     Dosage: UNK
     Route: 065
     Dates: start: 2006
  33. ACETAMINOPHEN [Suspect]
     Active Substance: ACETAMINOPHEN
     Indication: Pneumonia
     Dosage: UNK
     Route: 042
     Dates: start: 2006
  34. ACETAMINOPHEN [Suspect]
     Active Substance: ACETAMINOPHEN
     Dosage: UNK
     Route: 065
     Dates: start: 2006
  35. ACETAMINOPHEN [Suspect]
     Active Substance: ACETAMINOPHEN
     Dosage: UNK
     Route: 065
  36. ACETAMINOPHEN [Suspect]
     Active Substance: ACETAMINOPHEN
     Dosage: UNK
     Route: 042
     Dates: start: 2006
  37. FLUCONAZOLE [Suspect]
     Active Substance: FLUCONAZOLE
     Indication: Ill-defined disorder
     Dosage: 200 MG, QD
     Route: 042
     Dates: start: 2006
  38. FLUCONAZOLE [Suspect]
     Active Substance: FLUCONAZOLE
     Indication: Pneumonia
     Dosage: 200 MG, QD
     Route: 042
  39. FLUCONAZOLE [Suspect]
     Active Substance: FLUCONAZOLE
     Dosage: 20 MG, QD
     Route: 042
     Dates: start: 2006
  40. FLUCONAZOLE [Suspect]
     Active Substance: FLUCONAZOLE
     Dosage: DRUG DOSAGE FORM230
     Route: 065
  41. FLUCONAZOLE [Suspect]
     Active Substance: FLUCONAZOLE
     Dosage: 20 MG, QD
     Route: 065
  42. FLUCONAZOLE [Suspect]
     Active Substance: FLUCONAZOLE
     Dosage: UNK UNK, QD
     Route: 065
  43. FLUCONAZOLE [Suspect]
     Active Substance: FLUCONAZOLE
     Dosage: UNK UNK, QD
     Route: 065
  44. FLUCONAZOLE [Suspect]
     Active Substance: FLUCONAZOLE
     Dosage: 200 MG
     Route: 042
     Dates: start: 2006
  45. FLUCONAZOLE [Suspect]
     Active Substance: FLUCONAZOLE
     Dosage: 20 MG, QD
     Route: 065
  46. FUROSEMIDE [Suspect]
     Active Substance: FUROSEMIDE
     Indication: Pneumonia
     Dosage: 20 MG, QD
     Route: 042
     Dates: start: 2006
  47. FUROSEMIDE [Suspect]
     Active Substance: FUROSEMIDE
     Indication: Ill-defined disorder
     Dosage: 20 MG, 1 DOSE 12 HOURS
     Route: 042
     Dates: start: 2006
  48. FUROSEMIDE [Suspect]
     Active Substance: FUROSEMIDE
     Dosage: 20 MG, QD
     Route: 048
  49. FUROSEMIDE [Suspect]
     Active Substance: FUROSEMIDE
     Dosage: 40 MG, BID
     Route: 042
     Dates: start: 2006
  50. FUROSEMIDE [Suspect]
     Active Substance: FUROSEMIDE
     Dosage: 20 MG, QD
     Route: 048
     Dates: start: 2006
  51. FUROSEMIDE [Suspect]
     Active Substance: FUROSEMIDE
     Dosage: 40 MG, QD
     Route: 042
  52. FUROSEMIDE [Suspect]
     Active Substance: FUROSEMIDE
     Dosage: 20 MG, 12 HOURS
     Route: 042
  53. FUROSEMIDE [Suspect]
     Active Substance: FUROSEMIDE
     Dosage: 20 MG, BID
     Route: 048
  54. FUROSEMIDE [Suspect]
     Active Substance: FUROSEMIDE
     Dosage: 20 MG, 1 DOSE 12 HOURS
     Route: 042
  55. FUROSEMIDE [Suspect]
     Active Substance: FUROSEMIDE
     Dosage: 40 MG(20MG 2/1 DAYS)
     Route: 042
  56. FUROSEMIDE [Suspect]
     Active Substance: FUROSEMIDE
     Dosage: UNK
     Route: 042
     Dates: start: 2006
  57. FUROSEMIDE [Suspect]
     Active Substance: FUROSEMIDE
     Dosage: UNK
     Route: 065
     Dates: start: 2006
  58. FUROSEMIDE [Suspect]
     Active Substance: FUROSEMIDE
     Dosage: 20 MG, BID
     Route: 042
  59. HEPARIN SODIUM [Suspect]
     Active Substance: HEPARIN SODIUM
     Indication: Ill-defined disorder
     Dosage: 3500 UG, QD
     Route: 065
  60. HEPARIN SODIUM [Suspect]
     Active Substance: HEPARIN SODIUM
     Dosage: 3500 UG, QD
     Route: 065
  61. HEPARIN SODIUM [Suspect]
     Active Substance: HEPARIN SODIUM
     Dosage: 3500 UG, QD
     Route: 065
  62. LANSOPRAZOLE [Suspect]
     Active Substance: LANSOPRAZOLE
     Indication: Ill-defined disorder
     Dosage: 1 G, TID
     Route: 042
  63. LANSOPRAZOLE [Suspect]
     Active Substance: LANSOPRAZOLE
     Indication: Pneumonia
     Dosage: 3 G
     Route: 042
     Dates: start: 2006
  64. LANSOPRAZOLE [Suspect]
     Active Substance: LANSOPRAZOLE
     Dosage: 1-2 MG ONCE DAILY
     Route: 042
     Dates: start: 2006
  65. LANSOPRAZOLE [Suspect]
     Active Substance: LANSOPRAZOLE
     Dosage: 30 MG, QD
     Route: 042
  66. LANSOPRAZOLE [Suspect]
     Active Substance: LANSOPRAZOLE
     Dosage: 30 MG
     Route: 042
     Dates: start: 2006
  67. LANSOPRAZOLE [Suspect]
     Active Substance: LANSOPRAZOLE
     Dosage: 30 MG
     Route: 042
  68. LANSOPRAZOLE [Suspect]
     Active Substance: LANSOPRAZOLE
     Dosage: 30 MG, QD
     Route: 042
     Dates: start: 2006
  69. LANSOPRAZOLE [Suspect]
     Active Substance: LANSOPRAZOLE
     Dosage: 10 ML
     Route: 042
     Dates: start: 2006
  70. LANSOPRAZOLE [Suspect]
     Active Substance: LANSOPRAZOLE
     Dosage: 1-2MG
     Route: 042
  71. LANSOPRAZOLE [Suspect]
     Active Substance: LANSOPRAZOLE
     Dosage: 3 G
     Route: 042
  72. LANSOPRAZOLE [Suspect]
     Active Substance: LANSOPRAZOLE
     Dosage: 3 G
     Route: 042
  73. OMEPRAZOLE [Suspect]
     Active Substance: OMEPRAZOLE
     Indication: Pneumonia
     Dosage: 40 MG, QD
     Route: 042
  74. OMEPRAZOLE [Suspect]
     Active Substance: OMEPRAZOLE
     Indication: Ill-defined disorder
     Dosage: 40 MG, QD
     Route: 042
     Dates: start: 2006
  75. OMEPRAZOLE [Suspect]
     Active Substance: OMEPRAZOLE
     Dosage: UNK
     Route: 065
  76. OMEPRAZOLE [Suspect]
     Active Substance: OMEPRAZOLE
     Dosage: 40 MG
     Route: 042
     Dates: start: 2006
  77. OMEPRAZOLE [Suspect]
     Active Substance: OMEPRAZOLE
     Dosage: 40 MG
     Route: 065
     Dates: start: 2006
  78. OMEPRAZOLE [Suspect]
     Active Substance: OMEPRAZOLE
     Dosage: UNK
     Route: 065
  79. OMEPRAZOLE [Suspect]
     Active Substance: OMEPRAZOLE
     Dosage: 40 MG
     Route: 042
  80. OMEPRAZOLE [Suspect]
     Active Substance: OMEPRAZOLE
     Dosage: UNK
     Route: 065
  81. ALBUTEROL [Suspect]
     Active Substance: ALBUTEROL
     Indication: Product used for unknown indication
     Dosage: UNK
     Route: 065
     Dates: start: 2006
  82. ALBUTEROL [Suspect]
     Active Substance: ALBUTEROL
     Dosage: 1 DOSAGE FORM, PRN
     Route: 065
     Dates: start: 2006
  83. ALBUTEROL [Suspect]
     Active Substance: ALBUTEROL
     Dosage: UNK UNK, QD
     Route: 065
     Dates: start: 2006
  84. ALBUTEROL [Suspect]
     Active Substance: ALBUTEROL
     Dosage: 40 MG, QD
     Route: 065
     Dates: start: 2006
  85. ALBUTEROL [Suspect]
     Active Substance: ALBUTEROL
     Dosage: UNK UNK, PRN
     Route: 065
     Dates: start: 2006
  86. ALBUTEROL [Suspect]
     Active Substance: ALBUTEROL
     Dosage: UNK UNK, PRN
     Route: 065
     Dates: start: 2006
  87. ALBUTEROL [Suspect]
     Active Substance: ALBUTEROL
     Dosage: UNK UNK, PRN
     Route: 065
  88. ALBUTEROL [Suspect]
     Active Substance: ALBUTEROL
     Dosage: 1 DOSAGE FORM
     Route: 065
  89. ALBUTEROL [Suspect]
     Active Substance: ALBUTEROL
     Dosage: UNK
     Route: 065
  90. CIPROFLOXACIN HYDROCHLORIDE [Suspect]
     Active Substance: CIPROFLOXACIN HYDROCHLORIDE
     Indication: Ill-defined disorder
     Dosage: 400 MG, QD
     Route: 042
  91. CIPROFLOXACIN HYDROCHLORIDE [Suspect]
     Active Substance: CIPROFLOXACIN HYDROCHLORIDE
     Dosage: UNK
     Route: 065
  92. ACTRAPID [Suspect]
     Active Substance: INSULIN HUMAN
     Indication: Toxic epidermal necrolysis
     Dosage: 50 UNITS/50ML
     Route: 042
  93. ACTRAPID [Suspect]
     Active Substance: INSULIN HUMAN
     Indication: Pneumonia
     Dosage: 50 UNITS/50ML
     Route: 042
     Dates: start: 2006
  94. ACTRAPID [Suspect]
     Active Substance: INSULIN HUMAN
     Indication: Diabetes mellitus
     Dosage: UNK
     Route: 042
  95. ACTRAPID [Suspect]
     Active Substance: INSULIN HUMAN
     Dosage: INTRAVENOUS INFUSION
     Route: 042
  96. ACTRAPID [Suspect]
     Active Substance: INSULIN HUMAN
     Dosage: UNK, SOLUTION FOR INJECTION
     Route: 061
     Dates: start: 2006
  97. ACTRAPID [Suspect]
     Active Substance: INSULIN HUMAN
     Dosage: UNK
     Route: 065
  98. ACTRAPID [Suspect]
     Active Substance: INSULIN HUMAN
     Dosage: 50 UNITS/50ML
     Route: 042
     Dates: start: 2006
  99. ACTRAPID [Suspect]
     Active Substance: INSULIN HUMAN
     Dosage: UNK, SOLUTION FOR INFUSION
     Route: 042
     Dates: start: 2006
  100. ACTRAPID [Suspect]
     Active Substance: INSULIN HUMAN
     Dosage: SOLUTION FOR INJECTION
     Route: 065
  101. ACTRAPID [Suspect]
     Active Substance: INSULIN HUMAN
     Dosage: UNK,50 UNITS/50ML SOLUTION FOR INFUSION
     Route: 042
     Dates: start: 2006
  102. ACTRAPID [Suspect]
     Active Substance: INSULIN HUMAN
     Dosage: UNK
     Route: 065
  103. ACTRAPID [Suspect]
     Active Substance: INSULIN HUMAN
     Dosage: 50 ML
     Route: 042
     Dates: start: 2006
  104. ALFENTANIL [Suspect]
     Active Substance: ALFENTANIL
     Indication: Ill-defined disorder
     Dosage: UNK
     Route: 042
     Dates: start: 2006
  105. ALFENTANIL [Suspect]
     Active Substance: ALFENTANIL
     Indication: Pneumonia
     Dosage: 120 DOSAGE FORM, INFUSION
     Route: 065
  106. ALFENTANIL [Suspect]
     Active Substance: ALFENTANIL
     Dosage: UNK, INFUSION
     Route: 042
  107. ALFENTANIL [Suspect]
     Active Substance: ALFENTANIL
     Dosage: UNK, INJECTION
     Route: 042
     Dates: start: 2006
  108. ALFENTANIL [Suspect]
     Active Substance: ALFENTANIL
     Dosage: 120 DOSAGE FORM, INFUSION
     Route: 042
     Dates: start: 2006
  109. ALFENTANIL [Suspect]
     Active Substance: ALFENTANIL
     Dosage: UNK, INFUSION
     Route: 061
  110. ALFENTANIL [Suspect]
     Active Substance: ALFENTANIL
     Dosage: UNK
     Route: 042
     Dates: start: 2006
  111. CITRIC ACID [Suspect]
     Active Substance: CITRIC ACID MONOHYDRATE
     Indication: Ill-defined disorder
     Dosage: 100 MG, QD
     Route: 065
  112. CITRIC ACID [Suspect]
     Active Substance: CITRIC ACID MONOHYDRATE
     Indication: Pneumonia
     Dosage: 100 MG
     Route: 065
     Dates: start: 2006
  113. CITRIC ACID [Suspect]
     Active Substance: CITRIC ACID MONOHYDRATE
     Dosage: 100 MG
     Route: 048
  114. CITRIC ACID [Suspect]
     Active Substance: CITRIC ACID MONOHYDRATE
     Dosage: 100 MG, QD
     Route: 048
  115. CITRIC ACID [Suspect]
     Active Substance: CITRIC ACID MONOHYDRATE
     Dosage: UNK
     Route: 065
     Dates: start: 2006
  116. TRICLOSAN [Suspect]
     Active Substance: TRICLOSAN
     Indication: Ill-defined disorder
     Dosage: 24 UNK
     Route: 065
  117. TRICLOSAN [Suspect]
     Active Substance: TRICLOSAN
     Indication: Pneumonia
     Dosage: 24 DOSAGE FORM (CUTANEOUS SOLUTION) DOSE UNIT: DOSAGE FORM
     Route: 003
     Dates: start: 2006
  118. TRICLOSAN [Suspect]
     Active Substance: TRICLOSAN
     Dosage: 24 DOSAGE FORM (CUTANEOUS SOLUTION) DOSE UNIT: DOSAGE FORM
     Route: 065
     Dates: start: 2006
  119. TRICLOSAN [Suspect]
     Active Substance: TRICLOSAN
     Dosage: 24 DOSAGE FORM (CUTANEOUS SOLUTION) DOSE UNIT: DOSAGE FORM
     Route: 065
     Dates: start: 2006
  120. TRICLOSAN [Suspect]
     Active Substance: TRICLOSAN
     Dosage: UNK
     Route: 065
     Dates: start: 2006
  121. TRICLOSAN [Suspect]
     Active Substance: TRICLOSAN
     Dosage: UNK
     Route: 065
     Dates: start: 2006
  122. BACTROBAN [Suspect]
     Active Substance: MUPIROCIN\MUPIROCIN CALCIUM
     Indication: Ill-defined disorder
     Dosage: UNK
     Route: 065
     Dates: start: 2006
  123. BACTROBAN [Suspect]
     Active Substance: MUPIROCIN\MUPIROCIN CALCIUM
     Indication: Pneumonia
     Dosage: UNK (10ML/50% 8MMOLS/50MLS)
     Route: 065
     Dates: start: 2006
  124. BACTROBAN [Suspect]
     Active Substance: MUPIROCIN\MUPIROCIN CALCIUM
     Dosage: UNK (10ML/50% 8MMOLS/50MLS)
     Route: 065
     Dates: start: 2006
  125. BACTROBAN [Suspect]
     Active Substance: MUPIROCIN\MUPIROCIN CALCIUM
     Dosage: UNK
     Route: 065
     Dates: start: 2006
  126. BACTROBAN [Suspect]
     Active Substance: MUPIROCIN\MUPIROCIN CALCIUM
     Dosage: UNK
     Route: 065
  127. CALCIUM GLUCONATE [Suspect]
     Active Substance: CALCIUM GLUCONATE
     Indication: Ill-defined disorder
     Dosage: 10 ML
     Route: 042
     Dates: start: 2006
  128. CALCIUM GLUCONATE [Suspect]
     Active Substance: CALCIUM GLUCONATE
     Indication: Pneumonia
     Dosage: 10 ML, QD
     Route: 042
     Dates: start: 2006
  129. CALCIUM GLUCONATE [Suspect]
     Active Substance: CALCIUM GLUCONATE
     Dosage: 10 ML, QD
     Route: 042
     Dates: start: 2006
  130. CALCIUM GLUCONATE [Suspect]
     Active Substance: CALCIUM GLUCONATE
     Dosage: 10 ML, QD
     Route: 042
  131. CALCIUM GLUCONATE [Suspect]
     Active Substance: CALCIUM GLUCONATE
     Dosage: UNK
     Route: 065
  132. CALCIUM GLUCONATE [Suspect]
     Active Substance: CALCIUM GLUCONATE
     Dosage: UNK
     Route: 065
  133. CALCIUM GLUCONATE [Suspect]
     Active Substance: CALCIUM GLUCONATE
     Dosage: UNK
     Route: 065
  134. CALCIUM CHLORIDE [Suspect]
     Active Substance: CALCIUM CHLORIDE
     Indication: Ill-defined disorder
     Dosage: UNK
     Route: 065
  135. CALCIUM CHLORIDE [Suspect]
     Active Substance: CALCIUM CHLORIDE
     Indication: Pneumonia
     Dosage: UNK
     Route: 065
     Dates: start: 2006
  136. CALCIUM CHLORIDE [Suspect]
     Active Substance: CALCIUM CHLORIDE
     Dosage: 10 MILLILITER DOSE UNIT: DOSAGE FORM
     Route: 042
  137. CALCIUM CHLORIDE [Suspect]
     Active Substance: CALCIUM CHLORIDE
     Dosage: 10 ML,UNK (DAILY DOSE: 10 MILLILITRE(S) DOSE UNIT: DOSAGE FORM
     Route: 042
     Dates: start: 2006
  138. CALCIUM CHLORIDE [Suspect]
     Active Substance: CALCIUM CHLORIDE
     Dosage: UNK
     Route: 065
     Dates: start: 2006
  139. CALCIUM CHLORIDE [Suspect]
     Active Substance: CALCIUM CHLORIDE
     Dosage: UNK
     Route: 042
  140. CALCIUM CHLORIDE [Suspect]
     Active Substance: CALCIUM CHLORIDE
     Dosage: 120 MG
     Route: 042
     Dates: start: 2006
  141. ENOXAPARIN SODIUM [Suspect]
     Active Substance: ENOXAPARIN SODIUM
     Indication: Ill-defined disorder
     Dosage: 20 MG, QD
     Route: 058
     Dates: start: 2006
  142. ENOXAPARIN SODIUM [Suspect]
     Active Substance: ENOXAPARIN SODIUM
     Indication: Pneumonia
     Dosage: 20 MG, QD
     Route: 058
  143. ENOXAPARIN SODIUM [Suspect]
     Active Substance: ENOXAPARIN SODIUM
     Dosage: 20 MG, QD
     Route: 058
     Dates: start: 2006
  144. ENOXAPARIN SODIUM [Suspect]
     Active Substance: ENOXAPARIN SODIUM
     Dosage: 20 MG, QD
     Route: 058
     Dates: start: 2006
  145. ENOXAPARIN SODIUM [Suspect]
     Active Substance: ENOXAPARIN SODIUM
     Dosage: 20 MG, QD
     Route: 065
  146. ENOXAPARIN SODIUM [Suspect]
     Active Substance: ENOXAPARIN SODIUM
     Dosage: UNK
     Route: 058
  147. ENOXAPARIN SODIUM [Suspect]
     Active Substance: ENOXAPARIN SODIUM
     Dosage: 20 MG, QD
     Route: 048
  148. ENOXAPARIN SODIUM [Suspect]
     Active Substance: ENOXAPARIN SODIUM
     Dosage: UNK
     Route: 065
  149. CEFTRIAXONE [Suspect]
     Active Substance: CEFTRIAXONE
     Indication: Ill-defined disorder
     Dosage: 2 G
     Route: 042
  150. CEFTRIAXONE [Suspect]
     Active Substance: CEFTRIAXONE
     Indication: Pneumonia
     Dosage: 2 G
     Route: 042
     Dates: start: 2006
  151. CEFTRIAXONE [Suspect]
     Active Substance: CEFTRIAXONE
     Dosage: 2 G
     Route: 042
     Dates: start: 2006
  152. CEFTRIAXONE [Suspect]
     Active Substance: CEFTRIAXONE
     Dosage: 2 G
     Route: 042
  153. CEFTRIAXONE [Suspect]
     Active Substance: CEFTRIAXONE
     Dosage: UNK
     Route: 065
  154. ENOXAPARIN [Suspect]
     Active Substance: ENOXAPARIN
     Indication: Ill-defined disorder
     Dosage: 20 MG, QD
     Route: 058
     Dates: start: 2006
  155. ENOXAPARIN [Suspect]
     Active Substance: ENOXAPARIN
     Dosage: 20 MG
     Route: 065
  156. ENOXAPARIN [Suspect]
     Active Substance: ENOXAPARIN
     Dosage: 20 MG
     Route: 065
  157. SILVER SULFADIAZINE [Suspect]
     Active Substance: SILVER SULFADIAZINE
     Indication: Ill-defined disorder
     Dosage: UNK
     Route: 061
  158. SILVER SULFADIAZINE [Suspect]
     Active Substance: SILVER SULFADIAZINE
     Indication: Pneumonia
     Dosage: UNK
     Route: 061
     Dates: start: 2006
  159. SILVER SULFADIAZINE [Suspect]
     Active Substance: SILVER SULFADIAZINE
     Dosage: UNK
     Route: 061
  160. SILVER SULFADIAZINE [Suspect]
     Active Substance: SILVER SULFADIAZINE
     Dosage: UNK
     Route: 042
  161. SILVER SULFADIAZINE [Suspect]
     Active Substance: SILVER SULFADIAZINE
     Dosage: UNK
     Route: 065
     Dates: start: 2006
  162. FRAGMIN [Suspect]
     Active Substance: DALTEPARIN SODIUM
     Indication: Ill-defined disorder
     Dosage: 250 IU, QD
     Route: 065
  163. FRAGMIN [Suspect]
     Active Substance: DALTEPARIN SODIUM
     Indication: Pneumonia
     Dosage: 250 IU, QD
     Route: 058
  164. FRAGMIN [Suspect]
     Active Substance: DALTEPARIN SODIUM
     Dosage: 2500 IU, QD
     Route: 065
     Dates: start: 2006
  165. FRAGMIN [Suspect]
     Active Substance: DALTEPARIN SODIUM
     Dosage: 2500 IU, QD
     Route: 058
     Dates: start: 2006
  166. FRAGMIN [Suspect]
     Active Substance: DALTEPARIN SODIUM
     Dosage: 2500 IU, QD
     Route: 058
  167. FRAGMIN [Suspect]
     Active Substance: DALTEPARIN SODIUM
     Dosage: 200 IU, QD
     Route: 058
  168. FRAGMIN [Suspect]
     Active Substance: DALTEPARIN SODIUM
     Dosage: UNK, QD
     Route: 058
  169. FRAGMIN [Suspect]
     Active Substance: DALTEPARIN SODIUM
     Dosage: UNK, QD
     Route: 065
  170. FRAGMIN [Suspect]
     Active Substance: DALTEPARIN SODIUM
     Dosage: UNK
     Route: 058
     Dates: start: 2006
  171. FRAGMIN [Suspect]
     Active Substance: DALTEPARIN SODIUM
     Dosage: UNK, QD
     Route: 065
  172. FRAGMIN [Suspect]
     Active Substance: DALTEPARIN SODIUM
     Dosage: UNK, QD
     Route: 058
  173. FRAGMIN [Suspect]
     Active Substance: DALTEPARIN SODIUM
     Dosage: 200 IU
     Route: 058
     Dates: start: 2006
  174. FRAGMIN [Suspect]
     Active Substance: DALTEPARIN SODIUM
     Dosage: 200 IU, QD
     Route: 058
  175. FRAGMIN [Suspect]
     Active Substance: DALTEPARIN SODIUM
     Dosage: 200 IU, QD
     Route: 065
  176. FRAGMIN [Suspect]
     Active Substance: DALTEPARIN SODIUM
     Dosage: UNK
     Route: 065
  177. FRAGMIN [Suspect]
     Active Substance: DALTEPARIN SODIUM
     Dosage: 2500 IU, QD
     Route: 058
  178. FRAGMIN [Suspect]
     Active Substance: DALTEPARIN SODIUM
     Dosage: 2500 IU, QD
     Route: 058
  179. HYDROCORTISONE [Suspect]
     Active Substance: HYDROCORTISONE
     Indication: Ill-defined disorder
     Dosage: 100 MG, QD
     Route: 042
  180. HYDROCORTISONE [Suspect]
     Active Substance: HYDROCORTISONE
     Indication: Pneumonia
     Dosage: 100MG TOTAL
     Route: 065
  181. HYDROCORTISONE [Suspect]
     Active Substance: HYDROCORTISONE
     Dosage: 100 MG, ONCE/SINGLE
     Route: 065
  182. HYDROCORTISONE [Suspect]
     Active Substance: HYDROCORTISONE
     Dosage: 100 MG, QD
     Route: 042
     Dates: start: 2006
  183. HYDROCORTISONE [Suspect]
     Active Substance: HYDROCORTISONE
     Dosage: 100 MG, QD
     Route: 042
  184. HYDROCORTISONE [Suspect]
     Active Substance: HYDROCORTISONE
     Dosage: 100 MG
     Route: 065
  185. HYDROCORTISONE [Suspect]
     Active Substance: HYDROCORTISONE
     Dosage: 100 MG, QD (POWDER FOR SOLUTION FOR INJECTION?
     Route: 042
     Dates: start: 2006
  186. HYDROCORTISONE [Suspect]
     Active Substance: HYDROCORTISONE
     Dosage: 100 MG TOTAL
     Route: 042
  187. HYDROCORTISONE [Suspect]
     Active Substance: HYDROCORTISONE
     Dosage: 100 MG TOTAL
     Route: 042
     Dates: start: 2006
  188. HYDROCORTISONE [Suspect]
     Active Substance: HYDROCORTISONE
     Dosage: UNK
     Route: 065
  189. HYDROCORTISONE [Suspect]
     Active Substance: HYDROCORTISONE
     Dosage: 100 MG, QD
     Route: 065
     Dates: start: 2006
  190. HYDROCORTISONE [Suspect]
     Active Substance: HYDROCORTISONE
     Dosage: UNK
     Route: 065
     Dates: start: 2006
  191. HYDROCORTISONE [Suspect]
     Active Substance: HYDROCORTISONE
     Dosage: 100 MG
     Route: 048
     Dates: start: 2006
  192. INSULIN HUMAN [Suspect]
     Active Substance: INSULIN HUMAN
     Indication: Toxic epidermal necrolysis
     Dosage: 50 UNITS/50ML (124 DOSAGE FORM-INTRAVENOUS INFUSION)
     Route: 042
     Dates: start: 2006
  193. INSULIN HUMAN [Suspect]
     Active Substance: INSULIN HUMAN
     Indication: Pneumonia
     Dosage: (124 DOSAGE FORMINTRAVENOUS INFUSION)
     Route: 042
  194. INSULIN HUMAN [Suspect]
     Active Substance: INSULIN HUMAN
     Indication: Diabetes mellitus
     Dosage: 50 UNITS/50ML (124 DOSAGE FORM-INTRAVENOUS INFUSION)
     Route: 042
     Dates: start: 2006
  195. INSULIN HUMAN [Suspect]
     Active Substance: INSULIN HUMAN
     Dosage: UNK
     Route: 042
     Dates: start: 2006
  196. INSULIN HUMAN [Suspect]
     Active Substance: INSULIN HUMAN
     Dosage: UNK
     Route: 042
  197. INSULIN HUMAN [Suspect]
     Active Substance: INSULIN HUMAN
     Dosage: UNK
     Route: 042
  198. INSULIN HUMAN [Suspect]
     Active Substance: INSULIN HUMAN
     Dosage: 50 UNITS/50ML
     Route: 042
  199. INSULIN HUMAN [Suspect]
     Active Substance: INSULIN HUMAN
     Dosage: 50 UNITS/50ML; DOSAGE FORM:SOLUTION FOR INJECTION
     Route: 042
     Dates: start: 2006
  200. INSULIN HUMAN [Suspect]
     Active Substance: INSULIN HUMAN
     Dosage: UNK
     Route: 065
  201. INSULIN HUMAN [Suspect]
     Active Substance: INSULIN HUMAN
     Dosage: 50 ML
     Route: 042
     Dates: start: 2006
  202. INSULIN HUMAN [Suspect]
     Active Substance: INSULIN HUMAN
     Dosage: UNK
     Route: 061
     Dates: start: 2006
  203. INNOHEP [Suspect]
     Active Substance: TINZAPARIN SODIUM
     Indication: Ill-defined disorder
     Dosage: 3.5 ML, QD DOSE UNIT: DOSAGE FORM
     Route: 065
  204. INNOHEP [Suspect]
     Active Substance: TINZAPARIN SODIUM
     Indication: Pneumonia
     Dosage: 3500 UG, QD
     Route: 065
     Dates: start: 2006
  205. INNOHEP [Suspect]
     Active Substance: TINZAPARIN SODIUM
     Dosage: 3500 MCL, 1 DF DAILY DOSE UNIT: DOSAGE FORM
     Route: 065
     Dates: start: 2006
  206. INNOHEP [Suspect]
     Active Substance: TINZAPARIN SODIUM
     Dosage: 3500 ML, QD DOSE UNIT: DOSAGE FORM
     Route: 065
     Dates: start: 2006
  207. INNOHEP [Suspect]
     Active Substance: TINZAPARIN SODIUM
     Dosage: 4 ML, QD
     Route: 065
  208. INNOHEP [Suspect]
     Active Substance: TINZAPARIN SODIUM
     Dosage: 3500 UG, QD
     Route: 065
     Dates: start: 2006
  209. INNOHEP [Suspect]
     Active Substance: TINZAPARIN SODIUM
     Dosage: UNK
     Route: 065
  210. LACTULOSE [Suspect]
     Active Substance: LACTULOSE
     Indication: Ill-defined disorder
     Dosage: 10 ML
     Route: 065
     Dates: start: 2006
  211. LACTULOSE [Suspect]
     Active Substance: LACTULOSE
     Indication: Pneumonia
     Dosage: 10 ML
     Route: 050
  212. LACTULOSE [Suspect]
     Active Substance: LACTULOSE
     Dosage: 10 ML, QD
     Route: 065
  213. LACTULOSE [Suspect]
     Active Substance: LACTULOSE
     Dosage: 1 ML, QD
     Route: 065
     Dates: start: 2006
  214. LACTULOSE [Suspect]
     Active Substance: LACTULOSE
     Dosage: 10 ML
     Route: 050
  215. LACTULOSE [Suspect]
     Active Substance: LACTULOSE
     Dosage: UNK
     Route: 065
  216. LACTULOSE [Suspect]
     Active Substance: LACTULOSE
     Dosage: 10 ML
     Route: 065
     Dates: start: 2006
  217. LORAZEPAM [Suspect]
     Active Substance: LORAZEPAM
     Indication: Ill-defined disorder
     Dosage: UNK
     Route: 065
  218. LORAZEPAM [Suspect]
     Active Substance: LORAZEPAM
     Indication: Pneumonia
     Dosage: 1-2MG ONCE ONLY
     Route: 065
  219. LORAZEPAM [Suspect]
     Active Substance: LORAZEPAM
     Dosage: 1.2 MG
     Route: 065
     Dates: start: 2006
  220. LORAZEPAM [Suspect]
     Active Substance: LORAZEPAM
     Dosage: UNK
     Route: 065
  221. LORAZEPAM [Suspect]
     Active Substance: LORAZEPAM
     Dosage: 2 MG, QD
     Route: 065
  222. LORAZEPAM [Suspect]
     Active Substance: LORAZEPAM
     Dosage: UNK MG
     Route: 065
     Dates: start: 2006
  223. MAGNESIUM SULFATE [Suspect]
     Active Substance: MAGNESIUM SULFATE
     Indication: Ill-defined disorder
     Dosage: UNK
     Route: 065
  224. MAGNESIUM SULFATE [Suspect]
     Active Substance: MAGNESIUM SULFATE
     Indication: Pneumonia
     Dosage: UNK, 10ML/50% 8MMOLS/50MLS
     Route: 065
  225. MAGNESIUM SULFATE [Suspect]
     Active Substance: MAGNESIUM SULFATE
     Dosage: UNK, 10ML/50%8MMOLS/50MLS (INFUSION)
     Route: 065
     Dates: start: 2006
  226. MAGNESIUM SULFATE [Suspect]
     Active Substance: MAGNESIUM SULFATE
     Dosage: UNK, 10ML/50%8MMOLS/50MLS
     Route: 061
     Dates: start: 2006
  227. MAGNESIUM SULFATE [Suspect]
     Active Substance: MAGNESIUM SULFATE
     Dosage: UNK
     Route: 065
  228. MAGNESIUM SULFATE [Suspect]
     Active Substance: MAGNESIUM SULFATE
     Dosage: UNK
     Route: 065
  229. NOREPINEPHRINE [Suspect]
     Active Substance: NOREPINEPHRINE
     Indication: Ill-defined disorder
     Dosage: UNK UNK, QD
     Route: 065
     Dates: start: 2006
  230. NOREPINEPHRINE [Suspect]
     Active Substance: NOREPINEPHRINE
     Indication: Pneumonia
     Dosage: UNK
     Route: 065
     Dates: start: 2006
  231. NOREPINEPHRINE [Suspect]
     Active Substance: NOREPINEPHRINE
     Dosage: UNK
     Route: 065
  232. NOREPINEPHRINE [Suspect]
     Active Substance: NOREPINEPHRINE
     Dosage: UNK
     Route: 065
  233. NOREPINEPHRINE [Suspect]
     Active Substance: NOREPINEPHRINE
     Indication: Ill-defined disorder
     Dosage: UNK, QD
     Route: 065
     Dates: start: 2006
  234. NOREPINEPHRINE [Suspect]
     Active Substance: NOREPINEPHRINE
     Indication: Pneumonia
     Dosage: UNK
     Route: 065
     Dates: start: 2006
  235. NOREPINEPHRINE [Suspect]
     Active Substance: NOREPINEPHRINE
     Dosage: UNK
     Route: 065
  236. NOREPINEPHRINE [Suspect]
     Active Substance: NOREPINEPHRINE
     Dosage: UNK
     Route: 065
  237. NOREPINEPHRINE [Suspect]
     Active Substance: NOREPINEPHRINE
     Dosage: UNK
     Route: 065
  238. NOREPINEPHRINE [Suspect]
     Active Substance: NOREPINEPHRINE
     Dosage: UNK
     Route: 065
  239. POTASSIUM PHOSPHATE [Suspect]
     Active Substance: POTASSIUM PHOSPHATE
     Indication: Ill-defined disorder
     Dosage: UNK
     Route: 065
     Dates: start: 2006
  240. POTASSIUM PHOSPHATE [Suspect]
     Active Substance: POTASSIUM PHOSPHATE
     Indication: Pneumonia
     Dosage: UNK, QD (40MMOLS/100MLINFUSION)
     Route: 065
     Dates: start: 2006
  241. POTASSIUM PHOSPHATE [Suspect]
     Active Substance: POTASSIUM PHOSPHATE
     Dosage: UNK
     Route: 065
  242. POTASSIUM PHOSPHATE [Suspect]
     Active Substance: POTASSIUM PHOSPHATE
     Dosage: UNK
     Route: 065
     Dates: start: 2006
  243. POTASSIUM PHOSPHATE [Suspect]
     Active Substance: POTASSIUM PHOSPHATE
     Dosage: UNK
     Route: 065
  244. CANRENOATE POTASSIUM [Suspect]
     Active Substance: CANRENOATE POTASSIUM
     Indication: Ill-defined disorder
     Dosage: UNK
     Route: 065
  245. CANRENOATE POTASSIUM [Suspect]
     Active Substance: CANRENOATE POTASSIUM
     Dosage: UNK
     Route: 065
  246. POTASSIUM CHLORIDE [Suspect]
     Active Substance: POTASSIUM CHLORIDE
     Indication: Ill-defined disorder
     Dosage: 40MMOLS/100ML INFUSION
     Route: 065
     Dates: start: 2006
  247. POTASSIUM CHLORIDE [Suspect]
     Active Substance: POTASSIUM CHLORIDE
     Indication: Pneumonia
     Dosage: 2DF, THREE TIMES A DAY DOSE UNIT: DOSAGE FORM
     Route: 065
     Dates: start: 2006
  248. POTASSIUM CHLORIDE [Suspect]
     Active Substance: POTASSIUM CHLORIDE
     Dosage: UNK
     Route: 065
     Dates: start: 2006
  249. POTASSIUM CHLORIDE [Suspect]
     Active Substance: POTASSIUM CHLORIDE
     Dosage: UNK, TID(0.33 DAY)
     Route: 065
  250. POTASSIUM CHLORIDE [Suspect]
     Active Substance: POTASSIUM CHLORIDE
     Dosage: 1 DOSAGE FORM, QD DOSE UNIT: DOSAGE FORM
     Route: 065
     Dates: start: 2006
  251. POTASSIUM CHLORIDE [Suspect]
     Active Substance: POTASSIUM CHLORIDE
     Dosage: 2 DOSAGE FORM, TID DOSE UNIT: DOSAGE FORM
     Route: 061
     Dates: start: 2006
  252. POTASSIUM CHLORIDE [Suspect]
     Active Substance: POTASSIUM CHLORIDE
     Dosage: 2 DOSAGE FORM, TID DOSE UNIT: DOSAGE FORM
     Route: 065
  253. POTASSIUM CHLORIDE [Suspect]
     Active Substance: POTASSIUM CHLORIDE
     Dosage: 2 DOSAGE FORM, TID DOSE UNIT: DOSAGE FORM
     Route: 061
     Dates: start: 2006
  254. POTASSIUM CHLORIDE [Suspect]
     Active Substance: POTASSIUM CHLORIDE
     Dosage: 2 DOSAGE FORM, TID
     Route: 065
  255. POTASSIUM CHLORIDE [Suspect]
     Active Substance: POTASSIUM CHLORIDE
     Dosage: TID
     Route: 065
  256. POTASSIUM CHLORIDE [Suspect]
     Active Substance: POTASSIUM CHLORIDE
     Dosage: 2 DOSAGE FORM, QD DOSE UNIT: DOSAGE FORM
     Route: 065
  257. POTASSIUM CHLORIDE [Suspect]
     Active Substance: POTASSIUM CHLORIDE
     Dosage: 6 DOSAGE FORM, QD DOSE UNIT: DOSAGE FORM
     Route: 065
  258. POTASSIUM CHLORIDE [Suspect]
     Active Substance: POTASSIUM CHLORIDE
     Dosage: UNK, QD
     Route: 065
     Dates: start: 2006
  259. POTASSIUM CHLORIDE [Suspect]
     Active Substance: POTASSIUM CHLORIDE
     Dosage: UNK, QD
     Route: 065
     Dates: start: 2006
  260. POTASSIUM CHLORIDE [Suspect]
     Active Substance: POTASSIUM CHLORIDE
     Dosage: UNK, TID (0.33 DAY)
     Route: 065
  261. CHLORPHENIRAMINE MALEATE [Suspect]
     Active Substance: CHLORPHENIRAMINE MALEATE
     Indication: Ill-defined disorder
     Dosage: DAILY DOSE: 40 MILLIGRAM(S), 10 MG, QID
     Route: 042
     Dates: start: 2006
  262. CHLORPHENIRAMINE MALEATE [Suspect]
     Active Substance: CHLORPHENIRAMINE MALEATE
     Indication: Pneumonia
     Dosage: 40 MG, QD(DAILY DOSE TEXT: 10MG 4/1DAYS)
     Route: 042
  263. CHLORPHENIRAMINE MALEATE [Suspect]
     Active Substance: CHLORPHENIRAMINE MALEATE
     Indication: Toxic epidermal necrolysis
     Dosage: 10 MG, QID
     Route: 042
     Dates: start: 2006
  264. CHLORPHENIRAMINE MALEATE [Suspect]
     Active Substance: CHLORPHENIRAMINE MALEATE
     Dosage: 10 MG
     Route: 042
  265. CHLORPHENIRAMINE MALEATE [Suspect]
     Active Substance: CHLORPHENIRAMINE MALEATE
     Dosage: 10 MG, Q6H
     Route: 042
     Dates: start: 2006
  266. CHLORPHENIRAMINE MALEATE [Suspect]
     Active Substance: CHLORPHENIRAMINE MALEATE
     Dosage: 10 MG, Q6H
     Route: 042
     Dates: start: 2006
  267. CHLORPHENIRAMINE MALEATE [Suspect]
     Active Substance: CHLORPHENIRAMINE MALEATE
     Dosage: 40 MG, QD(DAILY DOSE TEXT: 10MG 4/1DAYS)
     Route: 042
  268. CHLORPHENIRAMINE MALEATE [Suspect]
     Active Substance: CHLORPHENIRAMINE MALEATE
     Dosage: 40 MG, QD
     Route: 065
  269. CHLORPHENIRAMINE MALEATE [Suspect]
     Active Substance: CHLORPHENIRAMINE MALEATE
     Dosage: 10 MG, QD
     Route: 042
  270. CHLORPHENIRAMINE MALEATE [Suspect]
     Active Substance: CHLORPHENIRAMINE MALEATE
     Dosage: 10 MG, QD
     Route: 042
     Dates: start: 2006
  271. PHYTONADIONE [Suspect]
     Active Substance: PHYTONADIONE
     Indication: Ill-defined disorder
     Dosage: UNK
     Route: 065
     Dates: start: 2006
  272. PHYTONADIONE [Suspect]
     Active Substance: PHYTONADIONE
     Indication: Pneumonia
     Dosage: UNK
     Route: 065
  273. PHYTONADIONE [Suspect]
     Active Substance: PHYTONADIONE
     Dosage: UNK
     Route: 065
     Dates: start: 2006
  274. CEFTRIAXONE SODIUM [Suspect]
     Active Substance: CEFTRIAXONE SODIUM
     Indication: Pneumonia
     Dosage: 2 G, QD
     Route: 042
     Dates: start: 2006
  275. CEFTRIAXONE SODIUM [Suspect]
     Active Substance: CEFTRIAXONE SODIUM
     Indication: Ill-defined disorder
     Dosage: 2 G
     Route: 042
  276. CEFTRIAXONE SODIUM [Suspect]
     Active Substance: CEFTRIAXONE SODIUM
     Dosage: 2 G
     Route: 042
     Dates: start: 2006
  277. CEFTRIAXONE SODIUM [Suspect]
     Active Substance: CEFTRIAXONE SODIUM
     Dosage: 2 UNK
     Route: 042
  278. CEFTRIAXONE SODIUM [Suspect]
     Active Substance: CEFTRIAXONE SODIUM
     Dosage: UNK
     Route: 042
     Dates: start: 2006
  279. CEFTRIAXONE SODIUM [Suspect]
     Active Substance: CEFTRIAXONE SODIUM
     Dosage: 2 G
     Route: 042
  280. CEFTRIAXONE SODIUM [Suspect]
     Active Substance: CEFTRIAXONE SODIUM
     Dosage: 1 DOSAGE FORM, PRN
     Route: 065
  281. POTASSIUM BICARBONATE\POTASSIUM CHLORIDE [Suspect]
     Active Substance: POTASSIUM BICARBONATE\POTASSIUM CHLORIDE
     Indication: Ill-defined disorder
     Dosage: 2 DL 3/1DAYS, 6 DF DAILY DOSE UNIT: DOSAGE FORM
     Route: 061
  282. POTASSIUM BICARBONATE\POTASSIUM CHLORIDE [Suspect]
     Active Substance: POTASSIUM BICARBONATE\POTASSIUM CHLORIDE
     Indication: Pneumonia
     Dosage: 6 DF, QD DOSE UNIT: DOSAGE FORM
     Route: 065
  283. POTASSIUM BICARBONATE\POTASSIUM CHLORIDE [Suspect]
     Active Substance: POTASSIUM BICARBONATE\POTASSIUM CHLORIDE
     Dosage: 6 DOSAGE FORM, 2 DF, TID DOSE UNIT: DOSAGE FORM
     Route: 061
     Dates: start: 2006
  284. POTASSIUM BICARBONATE\POTASSIUM CHLORIDE [Suspect]
     Active Substance: POTASSIUM BICARBONATE\POTASSIUM CHLORIDE
     Dosage: UNK UNK, TID
     Route: 065
  285. POTASSIUM BICARBONATE\POTASSIUM CHLORIDE [Suspect]
     Active Substance: POTASSIUM BICARBONATE\POTASSIUM CHLORIDE
     Dosage: UNK
     Route: 065
     Dates: start: 2006
  286. POTASSIUM BICARBONATE\POTASSIUM CHLORIDE [Suspect]
     Active Substance: POTASSIUM BICARBONATE\POTASSIUM CHLORIDE
     Dosage: 40MMOLS/100ML INFUSION
     Route: 065
     Dates: start: 2006
  287. POTASSIUM BICARBONATE\POTASSIUM CHLORIDE [Suspect]
     Active Substance: POTASSIUM BICARBONATE\POTASSIUM CHLORIDE
     Dosage: 2 DOSAGE FORM, QD
     Route: 065
  288. POTASSIUM BICARBONATE\POTASSIUM CHLORIDE [Suspect]
     Active Substance: POTASSIUM BICARBONATE\POTASSIUM CHLORIDE
     Dosage: 2 DOSAGE FORM, QD (DAILY DOSE TEXT: 2 DL 3/1DAYS) DOSE UNIT: DOSAGE FORM
     Route: 065
  289. POTASSIUM BICARBONATE\POTASSIUM CHLORIDE [Suspect]
     Active Substance: POTASSIUM BICARBONATE\POTASSIUM CHLORIDE
     Dosage: 2 DOSAGE FORM, Q8H (DAILY DOSE TEXT: 2 DL 3/1DAYS) DOSE UNIT: DOSAGE FORM
     Route: 065
  290. POTASSIUM BICARBONATE\POTASSIUM CHLORIDE [Suspect]
     Active Substance: POTASSIUM BICARBONATE\POTASSIUM CHLORIDE
     Dosage: 2 DOSAGE FORM, Q8H
     Route: 061
  291. POTASSIUM BICARBONATE\POTASSIUM CHLORIDE [Suspect]
     Active Substance: POTASSIUM BICARBONATE\POTASSIUM CHLORIDE
     Dosage: DAILY DOSE: 6 DOSAGE FORM, 2 DF, TID DOSE UNIT: DOSAGE FORM
     Route: 061
     Dates: start: 2006
  292. POTASSIUM BICARBONATE\POTASSIUM CHLORIDE [Suspect]
     Active Substance: POTASSIUM BICARBONATE\POTASSIUM CHLORIDE
     Dosage: UNK
     Route: 065
  293. POTASSIUM BICARBONATE\POTASSIUM CHLORIDE [Suspect]
     Active Substance: POTASSIUM BICARBONATE\POTASSIUM CHLORIDE
     Dosage: 2 UNK DOSE UNIT: DOSAGE FORM
     Route: 061
  294. POTASSIUM BICARBONATE\POTASSIUM CHLORIDE [Suspect]
     Active Substance: POTASSIUM BICARBONATE\POTASSIUM CHLORIDE
     Dosage: UNK
     Route: 065
     Dates: start: 2006
  295. POTASSIUM BICARBONATE\POTASSIUM CHLORIDE [Suspect]
     Active Substance: POTASSIUM BICARBONATE\POTASSIUM CHLORIDE
     Dosage: 2 DOSAGE FORM, Q8H, DAILY DOSE TEXT: 2 DL 3/1DAYS, DAILY DOSE: 6 DOSAGE FORM, 2 DF, TID DOSE UNIT: D
     Route: 061
     Dates: start: 2006
  296. POTASSIUM BICARBONATE\POTASSIUM CHLORIDE [Suspect]
     Active Substance: POTASSIUM BICARBONATE\POTASSIUM CHLORIDE
     Dosage: UNK40MMOLS/100ML INFUSION
     Route: 065
  297. POTASSIUM BICARBONATE\POTASSIUM CHLORIDE [Suspect]
     Active Substance: POTASSIUM BICARBONATE\POTASSIUM CHLORIDE
     Dosage: UNK UNK, TID
     Route: 065
  298. POTASSIUM BICARBONATE\POTASSIUM CHLORIDE [Suspect]
     Active Substance: POTASSIUM BICARBONATE\POTASSIUM CHLORIDE
     Dosage: 6 DOSAGE FORM, QD
     Route: 065
  299. POTASSIUM BICARBONATE\POTASSIUM CHLORIDE [Suspect]
     Active Substance: POTASSIUM BICARBONATE\POTASSIUM CHLORIDE
     Dosage: UNK
     Route: 065
  300. POTASSIUM BICARBONATE\POTASSIUM CHLORIDE [Suspect]
     Active Substance: POTASSIUM BICARBONATE\POTASSIUM CHLORIDE
     Dosage: UNK
     Route: 065
  301. SODIUM BICARBONATE [Suspect]
     Active Substance: SODIUM BICARBONATE
     Indication: Ill-defined disorder
     Dosage: ADMINISTRATION OVER AN HOUR
     Route: 042
     Dates: start: 2006
  302. SODIUM BICARBONATE [Suspect]
     Active Substance: SODIUM BICARBONATE
     Indication: Pneumonia
     Dosage: 100 MILLIGRAM, HOURLY
     Route: 042
  303. SODIUM BICARBONATE [Suspect]
     Active Substance: SODIUM BICARBONATE
     Indication: Product used for unknown indication
     Dosage: 100 MG, 1 DOSE HOURLY
     Route: 042
     Dates: start: 2006
  304. SODIUM BICARBONATE [Suspect]
     Active Substance: SODIUM BICARBONATE
     Dosage: SODIUM HYDROGEN CARBONATE,100 MG EVERY HOUR
     Route: 042
  305. SODIUM BICARBONATE [Suspect]
     Active Substance: SODIUM BICARBONATE
     Dosage: 100 MG, QOW
     Route: 042
     Dates: start: 2006
  306. SODIUM BICARBONATE [Suspect]
     Active Substance: SODIUM BICARBONATE
     Dosage: 100 MG,BIWEEKLY
     Route: 042
  307. SODIUM BICARBONATE [Suspect]
     Active Substance: SODIUM BICARBONATE
     Dosage: 100 MG,BIWEEKLY
     Route: 042
  308. SODIUM BICARBONATE [Suspect]
     Active Substance: SODIUM BICARBONATE
     Dosage: 100 MG,BIWEEKLY
     Route: 042
     Dates: start: 2006
  309. SODIUM BICARBONATE [Suspect]
     Active Substance: SODIUM BICARBONATE
     Dosage: UNK
     Route: 065
  310. SODIUM CHLORIDE [Suspect]
     Active Substance: SODIUM CHLORIDE
     Indication: Ill-defined disorder
     Dosage: 0.9 % PERCENT SOLUTION
     Route: 042
     Dates: start: 2006
  311. SODIUM CHLORIDE [Suspect]
     Active Substance: SODIUM CHLORIDE
     Indication: Pneumonia
     Dosage: 0.9 %, QD
     Route: 042
     Dates: start: 2006
  312. SODIUM CHLORIDE [Suspect]
     Active Substance: SODIUM CHLORIDE
     Dosage: 1 %, QD
     Route: 042
     Dates: start: 2006
  313. SODIUM CHLORIDE [Suspect]
     Active Substance: SODIUM CHLORIDE
     Dosage: 1 %
     Route: 042
     Dates: start: 2006
  314. SODIUM CHLORIDE [Suspect]
     Active Substance: SODIUM CHLORIDE
     Dosage: 1 %, QD
     Route: 042
     Dates: start: 2006
  315. SODIUM CHLORIDE [Suspect]
     Active Substance: SODIUM CHLORIDE
     Dosage: 0.9 PERCENT SOLUTION
     Route: 042
     Dates: start: 2006
  316. SODIUM CHLORIDE [Suspect]
     Active Substance: SODIUM CHLORIDE
     Dosage: UNK
     Route: 042
  317. SODIUM CHLORIDE [Suspect]
     Active Substance: SODIUM CHLORIDE
     Dosage: 0.9 %, QD
     Route: 042
  318. SODIUM CHLORIDE [Suspect]
     Active Substance: SODIUM CHLORIDE
     Dosage: 0.9 %, QD
     Route: 042
  319. SODIUM CHLORIDE [Suspect]
     Active Substance: SODIUM CHLORIDE
     Dosage: UNK
     Route: 065
  320. SODIUM CHLORIDE [Suspect]
     Active Substance: SODIUM CHLORIDE
     Dosage: UNK
     Route: 065
  321. SODIUM BICARBONATE [Suspect]
     Active Substance: SODIUM BICARBONATE
     Indication: Pneumonia
     Dosage: 100 ML, QH
     Route: 042
  322. SODIUM BICARBONATE [Suspect]
     Active Substance: SODIUM BICARBONATE
     Indication: Ill-defined disorder
     Dosage: 100 ML
     Route: 065
  323. SILVER SULFADIAZENE [Suspect]
     Active Substance: SILVER SULFADIAZINE
     Indication: Ill-defined disorder
     Dosage: UNK
     Route: 061
     Dates: start: 2006
  324. SILVER SULFADIAZENE [Suspect]
     Active Substance: SILVER SULFADIAZINE
     Indication: Pneumonia
     Dosage: UNK
     Route: 061
     Dates: start: 2006
  325. SILVER SULFADIAZENE [Suspect]
     Active Substance: SILVER SULFADIAZINE
     Dosage: UNK
     Route: 061
  326. SULFADIAZINE [Suspect]
     Active Substance: SULFADIAZINE
     Indication: Ill-defined disorder
     Dosage: UNK
     Route: 061
     Dates: start: 2006
  327. SULFADIAZINE [Suspect]
     Active Substance: SULFADIAZINE
     Indication: Pneumonia
     Dosage: UNK
     Route: 061
  328. SULFADIAZINE [Suspect]
     Active Substance: SULFADIAZINE
     Dosage: UNK
     Route: 065
  329. THIAMINE [Suspect]
     Active Substance: THIAMINE
     Indication: Ill-defined disorder
     Dosage: 100 MG, QD
     Route: 048
     Dates: start: 2006
  330. THIAMINE [Suspect]
     Active Substance: THIAMINE
     Indication: Pneumonia
     Dosage: 100 MG, TID, 8 HOURS
     Route: 048
  331. THIAMINE [Suspect]
     Active Substance: THIAMINE
     Dosage: 100 MG, QD
     Route: 042
  332. THIAMINE [Suspect]
     Active Substance: THIAMINE
     Dosage: UNK
     Route: 065
  333. THIAMINE [Suspect]
     Active Substance: THIAMINE
     Dosage: 100 MG, QD
     Route: 048
  334. THIAMINE [Suspect]
     Active Substance: THIAMINE
     Dosage: 100 MG, QD
     Route: 048
  335. THIAMINE [Suspect]
     Active Substance: THIAMINE
     Dosage: UNK
     Route: 065
  336. THIAMINE [Suspect]
     Active Substance: THIAMINE
     Dosage: 100 MG, QD
     Route: 048
  337. VITAMIN K1 [Suspect]
     Active Substance: PHYTONADIONE
     Indication: Ill-defined disorder
     Dosage: UNK
     Route: 065
     Dates: start: 2006
  338. VITAMIN K1 [Suspect]
     Active Substance: PHYTONADIONE
     Indication: Pneumonia
     Dosage: UNK
     Route: 065
     Dates: start: 2006
  339. VITAMIN K1 [Suspect]
     Active Substance: PHYTONADIONE
     Dosage: UNK
     Route: 065
  340. MIDODRINE HYDROCHLORIDE [Suspect]
     Active Substance: MIDODRINE HYDROCHLORIDE
     Indication: Ill-defined disorder
     Dosage: UNK
     Route: 048
  341. MIDODRINE HYDROCHLORIDE [Suspect]
     Active Substance: MIDODRINE HYDROCHLORIDE
     Dosage: UNK
     Route: 048
  342. RIBOFLAVIN [Suspect]
     Active Substance: RIBOFLAVIN
     Indication: Ill-defined disorder
     Dosage: UNK
     Route: 065
  343. MAGNESIUM HYDROXIDE [Suspect]
     Active Substance: MAGNESIUM HYDROXIDE
     Indication: Pneumonia
     Dosage: UNK,10ML/50% 8MMOLS/50MLS
     Route: 061
     Dates: start: 2006
  344. MAGNESIUM HYDROXIDE [Suspect]
     Active Substance: MAGNESIUM HYDROXIDE
     Indication: Ill-defined disorder
  345. INSULIN HUMAN [Suspect]
     Active Substance: INSULIN HUMAN
     Indication: Pneumonia
     Dosage: UNK
     Route: 042
     Dates: start: 2006
  346. POTASSIUM IODIDE [Suspect]
     Active Substance: POTASSIUM IODIDE
     Indication: Pneumonia
     Dosage: UNK
     Route: 065
     Dates: start: 2006
  347. POTASSIUM IODIDE [Suspect]
     Active Substance: POTASSIUM IODIDE
     Dosage: UNK
     Route: 065
  348. MUPIROCIN CALCIUM [Suspect]
     Active Substance: MUPIROCIN CALCIUM
     Indication: Pneumonia
     Dosage: UNK
     Route: 065
     Dates: start: 2006
  349. MUPIROCIN CALCIUM [Suspect]
     Active Substance: MUPIROCIN CALCIUM
     Indication: Ill-defined disorder
     Dosage: UNK
     Route: 065
  350. MUPIROCIN CALCIUM [Suspect]
     Active Substance: MUPIROCIN CALCIUM
     Indication: Toxic epidermal necrolysis
     Dosage: UNK
     Route: 042
     Dates: start: 2006
  351. MUPIROCIN CALCIUM [Suspect]
     Active Substance: MUPIROCIN CALCIUM
     Dosage: UNK
     Route: 065
     Dates: start: 2006
  352. CALCIUM CHLORIDE [Suspect]
     Active Substance: CALCIUM CHLORIDE
     Indication: Ill-defined disorder
     Dosage: 120 MG, QD, 10 ML
     Route: 042
     Dates: start: 2006
  353. CALCIUM CHLORIDE [Suspect]
     Active Substance: CALCIUM CHLORIDE
     Indication: Pneumonia
     Dosage: UNK
     Route: 065
     Dates: start: 2006
  354. CALCIUM CHLORIDE [Suspect]
     Active Substance: CALCIUM CHLORIDE
     Dosage: 120 DOSAGE FORM, 10 MILLILITER
     Route: 042
  355. CALCIUM CHLORIDE [Suspect]
     Active Substance: CALCIUM CHLORIDE
     Dosage: UNK
     Route: 042
  356. CALCIUM CHLORIDE [Suspect]
     Active Substance: CALCIUM CHLORIDE
     Dosage: 120 DOSAGE FORM,10 ML
     Route: 042
     Dates: start: 2006
  357. TINZAPARIN SODIUM [Suspect]
     Active Substance: TINZAPARIN SODIUM
     Indication: Ill-defined disorder
     Dosage: 1 DOSAGE FORM, 3500 MCL
     Route: 065
  358. TINZAPARIN SODIUM [Suspect]
     Active Substance: TINZAPARIN SODIUM
     Indication: Pneumonia
     Dosage: 1 DOSAGE FORM, QD,3500 MCL
     Route: 065
     Dates: start: 2006
  359. TINZAPARIN SODIUM [Suspect]
     Active Substance: TINZAPARIN SODIUM
     Dosage: 1 DOSAGE FORM, 3500 MICROLITRE
     Route: 065
  360. TINZAPARIN SODIUM [Suspect]
     Active Substance: TINZAPARIN SODIUM
     Dosage: 3500 UG, QD
     Route: 065
     Dates: start: 2006
  361. TINZAPARIN SODIUM [Suspect]
     Active Substance: TINZAPARIN SODIUM
     Dosage: 1 DOSAGE FORM, 3500 MCL
     Route: 065
     Dates: start: 2006
  362. TINZAPARIN SODIUM [Suspect]
     Active Substance: TINZAPARIN SODIUM
     Dosage: 4 ML, QD
     Route: 065
  363. PROPOFOL [Suspect]
     Active Substance: PROPOFOL
     Indication: Ill-defined disorder
     Dosage: INFUSION DRUG DOSAGE FORM 333
     Route: 065
     Dates: start: 2006
  364. PROPOFOL [Suspect]
     Active Substance: PROPOFOL
     Indication: Pneumonia
     Dosage: UNK,EMULSION FOR INJECTION/INFUSION
     Route: 042
  365. PROPOFOL [Suspect]
     Active Substance: PROPOFOL
     Dosage: UNK,EMULSION FOR INJECTION/INFUSION
     Route: 065
     Dates: start: 2006
  366. PROPOFOL [Suspect]
     Active Substance: PROPOFOL
     Dosage: UNK, INTRAVENOUS INFUSION
     Route: 042
     Dates: start: 2006
  367. PROPOFOL [Suspect]
     Active Substance: PROPOFOL
     Dosage: UNK
     Route: 065
     Dates: start: 2006
  368. CALCIUM CHLORIDE HEXAHYDRATE [Suspect]
     Active Substance: CALCIUM CHLORIDE HEXAHYDRATE
     Indication: Pneumonia
     Dosage: UNK
     Route: 065
     Dates: start: 2006
  369. HEPARIN CALCIUM [Suspect]
     Active Substance: HEPARIN CALCIUM
     Indication: Ill-defined disorder
     Dosage: UNK
     Route: 065
  370. CANRENOIC ACID [Suspect]
     Active Substance: CANRENOIC ACID
     Indication: Ill-defined disorder
     Dosage: UNK
     Route: 065
  371. THIAMINE MONONITRATE [Suspect]
     Active Substance: THIAMINE MONONITRATE
     Indication: Pneumonia
     Dosage: UNK
     Route: 065
  372. THIAMINE MONONITRATE [Suspect]
     Active Substance: THIAMINE MONONITRATE
     Indication: Ill-defined disorder
     Dosage: 100 MG, QD
     Route: 048
  373. INSULIN HUMAN [Suspect]
     Active Substance: INSULIN HUMAN
     Indication: Pneumonia
     Dosage: UNK
     Route: 042
     Dates: start: 2006
  374. MUPIROCIN [Suspect]
     Active Substance: MUPIROCIN
     Indication: Pneumonia
     Dosage: UNK
     Route: 065
     Dates: start: 2006
  375. MUPIROCIN [Suspect]
     Active Substance: MUPIROCIN
     Indication: Ill-defined disorder
     Dosage: UNK
     Route: 065
  376. MUPIROCIN [Suspect]
     Active Substance: MUPIROCIN
     Indication: Toxic epidermal necrolysis
     Dosage: UNK,50 UNITS/50MLI
     Route: 042
     Dates: start: 2006
  377. MUPIROCIN [Suspect]
     Active Substance: MUPIROCIN
     Dosage: UNK
     Route: 065
     Dates: start: 2006
  378. AMOXICILLIN TRIHYDRATE [Suspect]
     Active Substance: AMOXICILLIN
     Indication: Ill-defined disorder
     Dosage: 1 G,8 HOURS
     Route: 065
  379. AMOXICILLIN TRIHYDRATE [Suspect]
     Active Substance: AMOXICILLIN
     Dosage: 250 MG,8 HOURS
     Route: 065
  380. VITAMIN B [Suspect]
     Active Substance: VITAMIN B
     Indication: Ill-defined disorder
     Dosage: UNK
     Route: 065
     Dates: start: 2006
  381. VITAMIN B [Suspect]
     Active Substance: VITAMIN B
     Dosage: UNK
     Route: 065
  382. GLUTAMIC ACID [Suspect]
     Active Substance: GLUTAMIC ACID
     Indication: Ill-defined disorder
     Dosage: UNK
     Route: 065
  383. TRICLOSAN [Suspect]
     Active Substance: TRICLOSAN
     Indication: Pneumonia
     Dosage: UNK
     Route: 065
  384. TRICLOSAN [Suspect]
     Active Substance: TRICLOSAN
     Indication: Ill-defined disorder
     Dosage: UNK
     Route: 065
     Dates: start: 2006
  385. TRICLOSAN [Suspect]
     Active Substance: TRICLOSAN
     Dosage: 24 DOSAGE FORM
     Route: 065
     Dates: start: 2006
  386. TRICLOSAN [Suspect]
     Active Substance: TRICLOSAN
     Dosage: UNK
     Route: 065
     Dates: start: 2006
  387. TRICLOSAN [Suspect]
     Active Substance: TRICLOSAN
     Dosage: UNK
     Route: 065
  388. TRICLOSAN [Suspect]
     Active Substance: TRICLOSAN
     Dosage: UNK
     Route: 065
  389. TRICLOSAN [Suspect]
     Active Substance: TRICLOSAN
     Dosage: UNK
     Route: 065
  390. AMOXICILLIN [Suspect]
     Active Substance: AMOXICILLIN
     Indication: Ill-defined disorder
     Dosage: 250 MG
     Route: 048
     Dates: start: 20060913
  391. AMOXICILLIN [Suspect]
     Active Substance: AMOXICILLIN
     Indication: Pneumonia
     Dosage: 250 MG
     Route: 048
  392. AMOXICILLIN [Suspect]
     Active Substance: AMOXICILLIN
     Dosage: 3 G, 1 DOSE HOURLY
     Route: 042
  393. AMOXICILLIN [Suspect]
     Active Substance: AMOXICILLIN
     Dosage: UNK
     Route: 065
     Dates: start: 20060913
  394. AMOXICILLIN [Suspect]
     Active Substance: AMOXICILLIN
     Dosage: 3 G, TID
     Route: 042
     Dates: start: 20060913
  395. AMOXICILLIN [Suspect]
     Active Substance: AMOXICILLIN
     Dosage: 9 G, TID
     Route: 065
     Dates: start: 20060913
  396. AMOXICILLIN [Suspect]
     Active Substance: AMOXICILLIN
     Dosage: 250 MG, TID
     Route: 042
     Dates: start: 20060913
  397. AMOXICILLIN [Suspect]
     Active Substance: AMOXICILLIN
     Dosage: 1 G, TIME INTERVAL
     Route: 042
  398. AMOXICILLIN [Suspect]
     Active Substance: AMOXICILLIN
     Dosage: 250 UNK
     Route: 042
  399. AMOXICILLIN [Suspect]
     Active Substance: AMOXICILLIN
     Dosage: 3 G, 1 G 3/1 DAYS
     Route: 042
  400. AMOXICILLIN [Suspect]
     Active Substance: AMOXICILLIN
     Dosage: 250 MG, QD
     Route: 048
     Dates: start: 20060913
  401. AMOXICILLIN [Suspect]
     Active Substance: AMOXICILLIN
     Dosage: 1 G, 8 HOURS
     Route: 042
  402. AMOXICILLIN [Suspect]
     Active Substance: AMOXICILLIN
     Dosage: UNK
     Route: 042
  403. AMOXICILLIN [Suspect]
     Active Substance: AMOXICILLIN
     Dosage: 3 G, TID ((1G TID (DAILY DOSE 3 GRAM 1D, 1G (TID) 0.33 DAY)(
     Route: 042
     Dates: start: 20060913
  404. CHLORPHENIRAMINE MALEATE [Suspect]
     Active Substance: CHLORPHENIRAMINE MALEATE
     Indication: Toxic epidermal necrolysis
     Dosage: 40 MG, QD
     Route: 042
     Dates: start: 2006
  405. CHLORPHENIRAMINE MALEATE [Suspect]
     Active Substance: CHLORPHENIRAMINE MALEATE
     Indication: Ill-defined disorder
     Dosage: 10 MG, Q6H
     Route: 042
  406. CHLORPHENIRAMINE MALEATE [Suspect]
     Active Substance: CHLORPHENIRAMINE MALEATE
     Indication: Pneumonia
     Dosage: 40 MG, QD
     Route: 042
  407. CHLORPHENIRAMINE MALEATE [Suspect]
     Active Substance: CHLORPHENIRAMINE MALEATE
     Dosage: 40 MG,10 MG, QID
     Route: 042
     Dates: start: 2006
  408. CHLORPHENIRAMINE MALEATE [Suspect]
     Active Substance: CHLORPHENIRAMINE MALEATE
     Dosage: 10 MG, QD
     Route: 042
     Dates: start: 2006
  409. CHLORPHENIRAMINE MALEATE [Suspect]
     Active Substance: CHLORPHENIRAMINE MALEATE
     Dosage: 10 MG, 1 DOSE 6 HOURS
     Route: 042
  410. CHLORPHENIRAMINE MALEATE [Suspect]
     Active Substance: CHLORPHENIRAMINE MALEATE
     Dosage: 40 MG, QD
     Route: 042
  411. CHLORPHENIRAMINE MALEATE [Suspect]
     Active Substance: CHLORPHENIRAMINE MALEATE
     Dosage: 40 MG, QD
     Route: 042
     Dates: start: 2006
  412. CHLORPHENIRAMINE MALEATE [Suspect]
     Active Substance: CHLORPHENIRAMINE MALEATE
     Dosage: 10 MG, QD
     Route: 065
  413. ERYTHROMYCIN STEARATE [Suspect]
     Active Substance: ERYTHROMYCIN STEARATE
     Indication: Product used for unknown indication
     Dosage: UNK
     Route: 065
  414. ERYTHROMYCIN STEARATE [Suspect]
     Active Substance: ERYTHROMYCIN STEARATE
     Dosage: UNK
     Route: 065
  415. ROCEPHIN [Suspect]
     Active Substance: CEFTRIAXONE SODIUM
     Indication: Ill-defined disorder
     Dosage: 2 G, QD
     Route: 042
     Dates: start: 2006
  416. ROCEPHIN [Suspect]
     Active Substance: CEFTRIAXONE SODIUM
     Indication: Pneumonia
     Dosage: 2 G
     Route: 042
     Dates: start: 2006
  417. ROCEPHIN [Suspect]
     Active Substance: CEFTRIAXONE SODIUM
     Dosage: UNK
     Route: 065
  418. CIPROFLOXACIN HYDROCHLORIDE [Suspect]
     Active Substance: CIPROFLOXACIN HYDROCHLORIDE
     Indication: Ill-defined disorder
     Dosage: 400 MG, QD
     Route: 042
  419. CIPROFLOXACIN HYDROCHLORIDE [Suspect]
     Active Substance: CIPROFLOXACIN HYDROCHLORIDE
     Dosage: 400 MG, QD
     Route: 042
  420. CIPROFLOXACIN HYDROCHLORIDE [Suspect]
     Active Substance: CIPROFLOXACIN HYDROCHLORIDE
     Dosage: 400 MG, QD
     Route: 042
  421. CIPROFLOXACIN HYDROCHLORIDE [Suspect]
     Active Substance: CIPROFLOXACIN HYDROCHLORIDE
     Dosage: UNK
     Route: 065
  422. CIPROFLOXACIN HYDROCHLORIDE [Suspect]
     Active Substance: CIPROFLOXACIN HYDROCHLORIDE
     Dosage: UNK
     Route: 065
  423. IPRATROPIUM BROMIDE [Concomitant]
     Active Substance: IPRATROPIUM BROMIDE
     Indication: Ill-defined disorder
     Dosage: UNK
     Route: 065
  424. CIPROFLOXACIN [Concomitant]
     Active Substance: CIPROFLOXACIN
     Indication: Ill-defined disorder
     Dosage: 400 MG, QD
     Route: 042
  425. CIPROFLOXACIN [Concomitant]
     Active Substance: CIPROFLOXACIN
     Dosage: 400 MG, QD
     Route: 042
  426. CIPROFLOXACIN [Concomitant]
     Active Substance: CIPROFLOXACIN
     Dosage: 400 MG, QD
     Route: 042
  427. CIPROFLOXACIN [Concomitant]
     Active Substance: CIPROFLOXACIN
     Dosage: 400 MG
     Route: 042
  428. CIPROFLOXACIN [Concomitant]
     Active Substance: CIPROFLOXACIN
     Dosage: 400 MG, QD
     Route: 042
  429. AMOXICILLIN\CLAVULANATE POTASSIUM [Concomitant]
     Active Substance: AMOXICILLIN\CLAVULANATE POTASSIUM
     Indication: Product used for unknown indication
     Dosage: 375 MG, TID
     Route: 048
     Dates: start: 20060913
  430. AMOXICILLIN\CLAVULANATE POTASSIUM [Concomitant]
     Active Substance: AMOXICILLIN\CLAVULANATE POTASSIUM
     Dosage: 375 MG, TID
     Route: 048
     Dates: start: 20060913
  431. AMOXICILLIN\CLAVULANATE POTASSIUM [Concomitant]
     Active Substance: AMOXICILLIN\CLAVULANATE POTASSIUM
     Dosage: 375 MG, Q8H ( (DAILY DOSE TEXT: 375MG 3/1DAYS), TID UNK)
     Route: 048
     Dates: start: 20060913
  432. AMOXICILLIN\CLAVULANATE POTASSIUM [Concomitant]
     Active Substance: AMOXICILLIN\CLAVULANATE POTASSIUM
     Dosage: 875 MG, TID
     Route: 048
     Dates: start: 20060913
  433. AMOXICILLIN\CLAVULANATE POTASSIUM [Concomitant]
     Active Substance: AMOXICILLIN\CLAVULANATE POTASSIUM
     Dosage: 250 MG
     Route: 048
  434. AMOXICILLIN\CLAVULANATE POTASSIUM [Concomitant]
     Active Substance: AMOXICILLIN\CLAVULANATE POTASSIUM
     Dosage: 1125 MG, QD
     Route: 048
     Dates: start: 20060913
  435. AMOXICILLIN\CLAVULANATE POTASSIUM [Concomitant]
     Active Substance: AMOXICILLIN\CLAVULANATE POTASSIUM
     Dosage: UNK
     Route: 048
  436. AMOXICILLIN\CLAVULANATE POTASSIUM [Concomitant]
     Active Substance: AMOXICILLIN\CLAVULANATE POTASSIUM
     Dosage: 2625 MG, QD
     Route: 048
     Dates: start: 20060913
  437. AMOXICILLIN\CLAVULANATE POTASSIUM [Concomitant]
     Active Substance: AMOXICILLIN\CLAVULANATE POTASSIUM
     Dosage: 250 MG
     Route: 048
  438. AMOXICILLIN\CLAVULANATE POTASSIUM [Concomitant]
     Active Substance: AMOXICILLIN\CLAVULANATE POTASSIUM
     Dosage: 375 MG
     Route: 048
     Dates: start: 20060913
  439. PIPERACILLIN SODIUM\TAZOBACTAM SODIUM [Concomitant]
     Active Substance: PIPERACILLIN SODIUM\TAZOBACTAM SODIUM
     Indication: Ill-defined disorder
     Dosage: 4.5 MG, TID
     Route: 042
     Dates: start: 2006
  440. PIPERACILLIN SODIUM\TAZOBACTAM SODIUM [Concomitant]
     Active Substance: PIPERACILLIN SODIUM\TAZOBACTAM SODIUM
     Dosage: 13.5 G, QD (INCREASED TO 4 TIMES DAILY BETWEEN 04 OCT 2006 AND 09 OCT 2006)
     Route: 042
     Dates: start: 20061004, end: 20061009
  441. PIPERACILLIN SODIUM\TAZOBACTAM SODIUM [Concomitant]
     Active Substance: PIPERACILLIN SODIUM\TAZOBACTAM SODIUM
     Dosage: 13.5 G, QD
     Route: 042
     Dates: start: 20061004, end: 20061009
  442. PIPERACILLIN SODIUM\TAZOBACTAM SODIUM [Concomitant]
     Active Substance: PIPERACILLIN SODIUM\TAZOBACTAM SODIUM
     Dosage: 4.5 G, TID
     Route: 042
     Dates: start: 20061009
  443. PIPERACILLIN SODIUM\TAZOBACTAM SODIUM [Concomitant]
     Active Substance: PIPERACILLIN SODIUM\TAZOBACTAM SODIUM
     Dosage: 4.5 G, QID
     Route: 042
     Dates: start: 20061004, end: 20061009
  444. PIPERACILLIN SODIUM\TAZOBACTAM SODIUM [Concomitant]
     Active Substance: PIPERACILLIN SODIUM\TAZOBACTAM SODIUM
     Dosage: 18 MG (INCREASED TO 4 TIMES DAILY BETWEEN 04 OCT 2006 AND 09 OCT 2006)
     Route: 042
     Dates: start: 20061004, end: 20061009
  445. PIPERACILLIN SODIUM\TAZOBACTAM SODIUM [Concomitant]
     Active Substance: PIPERACILLIN SODIUM\TAZOBACTAM SODIUM
     Dosage: 18 G, QD
     Route: 042
     Dates: start: 20061004, end: 20061009
  446. PIPERACILLIN SODIUM\TAZOBACTAM SODIUM [Concomitant]
     Active Substance: PIPERACILLIN SODIUM\TAZOBACTAM SODIUM
     Dosage: 5 G, Q8H
     Route: 065
  447. PIPERACILLIN SODIUM\TAZOBACTAM SODIUM [Concomitant]
     Active Substance: PIPERACILLIN SODIUM\TAZOBACTAM SODIUM
     Dosage: 5 G, Q6H
     Route: 065
     Dates: start: 20060410, end: 20060910
  448. PIPERACILLIN SODIUM\TAZOBACTAM SODIUM [Concomitant]
     Active Substance: PIPERACILLIN SODIUM\TAZOBACTAM SODIUM
     Dosage: 4.5 MILLIGRAM, QD (INCREASED TO 4 TIMES DAILY BETWEEN 04 OCT 2006 AND 09 OCT 2006)
     Route: 065
  449. PIPERACILLIN SODIUM\TAZOBACTAM SODIUM [Concomitant]
     Active Substance: PIPERACILLIN SODIUM\TAZOBACTAM SODIUM
     Dosage: 4.5 MG
     Route: 042
     Dates: start: 2006
  450. PIPERACILLIN SODIUM\TAZOBACTAM SODIUM [Concomitant]
     Active Substance: PIPERACILLIN SODIUM\TAZOBACTAM SODIUM
     Dosage: INCREASED TO 4 TIMES DAILY BETWEEN 04 OCT 2006 AND 09 OCT 2006
     Route: 042
     Dates: start: 20061004, end: 20061009
  451. PIPERACILLIN SODIUM\TAZOBACTAM SODIUM [Concomitant]
     Active Substance: PIPERACILLIN SODIUM\TAZOBACTAM SODIUM
     Dosage: 14 G, QD
     Route: 065
  452. PIPERACILLIN SODIUM\TAZOBACTAM SODIUM [Concomitant]
     Active Substance: PIPERACILLIN SODIUM\TAZOBACTAM SODIUM
     Dosage: 4.5 G, TID
     Route: 042
     Dates: start: 20061004, end: 20061009
  453. PIPERACILLIN SODIUM\TAZOBACTAM SODIUM [Concomitant]
     Active Substance: PIPERACILLIN SODIUM\TAZOBACTAM SODIUM
     Dosage: 13.5 G, QD
     Route: 042
     Dates: start: 20061004, end: 20061009
  454. PIPERACILLIN SODIUM\TAZOBACTAM SODIUM [Concomitant]
     Active Substance: PIPERACILLIN SODIUM\TAZOBACTAM SODIUM
     Dosage: 4.5 G, TID
     Route: 065
  455. PIPERACILLIN SODIUM\TAZOBACTAM SODIUM [Concomitant]
     Active Substance: PIPERACILLIN SODIUM\TAZOBACTAM SODIUM
     Dosage: 4.5 G, QID
     Route: 042
     Dates: start: 20061004, end: 20061009
  456. PIPERACILLIN SODIUM\TAZOBACTAM SODIUM [Concomitant]
     Active Substance: PIPERACILLIN SODIUM\TAZOBACTAM SODIUM
     Dosage: 4.5 G, Q6H
     Route: 065
  457. PIPERACILLIN SODIUM\TAZOBACTAM SODIUM [Concomitant]
     Active Substance: PIPERACILLIN SODIUM\TAZOBACTAM SODIUM
     Dosage: 4.5 G, TID
     Route: 042
  458. PIPERACILLIN SODIUM\TAZOBACTAM SODIUM [Concomitant]
     Active Substance: PIPERACILLIN SODIUM\TAZOBACTAM SODIUM
     Dosage: 4.5 MG, QID
     Route: 065
     Dates: start: 2006
  459. PIPERACILLIN SODIUM\TAZOBACTAM SODIUM [Concomitant]
     Active Substance: PIPERACILLIN SODIUM\TAZOBACTAM SODIUM
     Dosage: 4.5 MG, QID
     Route: 042
     Dates: start: 20061009
  460. PIPERACILLIN SODIUM\TAZOBACTAM SODIUM [Concomitant]
     Active Substance: PIPERACILLIN SODIUM\TAZOBACTAM SODIUM
     Dosage: UNK
     Route: 065
  461. PIPERACILLIN SODIUM\TAZOBACTAM SODIUM [Concomitant]
     Active Substance: PIPERACILLIN SODIUM\TAZOBACTAM SODIUM
     Dosage: 54 G, QD
     Route: 042
     Dates: start: 20060104, end: 20060109
  462. PIPERACILLIN SODIUM\TAZOBACTAM SODIUM [Concomitant]
     Active Substance: PIPERACILLIN SODIUM\TAZOBACTAM SODIUM
     Dosage: 4.5 G, QD
     Route: 042
  463. ASPIRIN\PSEUDOEPHEDRINE HYDROCHLORIDE [Concomitant]
     Active Substance: ASPIRIN\PSEUDOEPHEDRINE HYDROCHLORIDE
     Indication: Ill-defined disorder
     Dosage: UNK
     Route: 065
  464. ERYTHROMYCIN [Concomitant]
     Active Substance: ERYTHROMYCIN
     Indication: Ill-defined disorder
     Dosage: 250 MG, QD
     Route: 050
  465. ERYTHROMYCIN [Concomitant]
     Active Substance: ERYTHROMYCIN
     Dosage: 250 MG
     Route: 050
  466. ERYTHROMYCIN [Concomitant]
     Active Substance: ERYTHROMYCIN
     Dosage: 250 MG, QD
     Route: 050
  467. ERYTHROMYCIN [Concomitant]
     Active Substance: ERYTHROMYCIN
     Dosage: 250 MG
     Route: 050
  468. ERYTHROMYCIN [Concomitant]
     Active Substance: ERYTHROMYCIN
     Dosage: 25 MG
     Route: 065
  469. ERYTHROMYCIN [Concomitant]
     Active Substance: ERYTHROMYCIN
     Dosage: 10 MG, QD
     Route: 042
  470. ERYTHROMYCIN [Concomitant]
     Active Substance: ERYTHROMYCIN
     Dosage: UNK
     Route: 065
  471. METOCLOPRAMIDE [Concomitant]
     Active Substance: METOCLOPRAMIDE
     Indication: Ill-defined disorder
     Dosage: 10 MG
     Route: 042
  472. METOCLOPRAMIDE [Concomitant]
     Active Substance: METOCLOPRAMIDE
     Dosage: 10 MG, QD
     Route: 042
  473. METOCLOPRAMIDE [Concomitant]
     Active Substance: METOCLOPRAMIDE
     Dosage: 10 MG
     Route: 048
  474. METOCLOPRAMIDE [Concomitant]
     Active Substance: METOCLOPRAMIDE
     Dosage: 10 MG, QD
     Route: 042
  475. PANTOPRAZOLE [Concomitant]
     Active Substance: PANTOPRAZOLE
     Indication: Ill-defined disorder
     Dosage: 40 MG, QD
     Route: 042
  476. PANTOPRAZOLE [Concomitant]
     Active Substance: PANTOPRAZOLE
     Dosage: 40 MG, QD
     Route: 042
  477. PANTOPRAZOLE [Concomitant]
     Active Substance: PANTOPRAZOLE
     Dosage: 40 MG, QD
     Route: 042
  478. PANTOPRAZOLE [Concomitant]
     Active Substance: PANTOPRAZOLE
     Dosage: 40 MG, QD
     Route: 042
  479. ATROVENT [Concomitant]
     Active Substance: IPRATROPIUM BROMIDE
     Indication: Ill-defined disorder
     Dosage: 1 DOSAGE FORM, PRN,NEBULISER LIQUID
     Route: 065
  480. ATROVENT [Concomitant]
     Active Substance: IPRATROPIUM BROMIDE
     Dosage: UNK, NEBULISER LIQUID
     Route: 048
  481. ATROVENT [Concomitant]
     Active Substance: IPRATROPIUM BROMIDE
     Dosage: UNK, PRN,NEBULISER LIQUID
     Route: 065
  482. ATROVENT [Concomitant]
     Active Substance: IPRATROPIUM BROMIDE
     Dosage: UNK,NEBULISER LIQUID
     Route: 065
  483. ATROVENT [Concomitant]
     Active Substance: IPRATROPIUM BROMIDE
     Dosage: UNK
     Route: 065
  484. ATROVENT [Concomitant]
     Active Substance: IPRATROPIUM BROMIDE
     Dosage: 1 DOSAGE FORM, NEBULISER LIQUID
     Route: 065
  485. ATROVENT [Concomitant]
     Active Substance: IPRATROPIUM BROMIDE
     Dosage: 1 DOSAGE FORM
     Route: 065
  486. ATROVENT [Concomitant]
     Active Substance: IPRATROPIUM BROMIDE
     Dosage: UNK
     Route: 048
  487. ATROVENT [Concomitant]
     Active Substance: IPRATROPIUM BROMIDE
     Dosage: UNK
     Route: 065
  488. ATROVENT [Concomitant]
     Active Substance: IPRATROPIUM BROMIDE
     Dosage: UNK
     Route: 065
  489. ATROVENT [Concomitant]
     Active Substance: IPRATROPIUM BROMIDE
     Dosage: UNK
     Route: 065
  490. ATROVENT [Concomitant]
     Active Substance: IPRATROPIUM BROMIDE
     Dosage: UNK
     Route: 065
  491. ATROVENT [Concomitant]
     Active Substance: IPRATROPIUM BROMIDE
     Dosage: UNK
     Route: 065
  492. ATROVENT [Concomitant]
     Active Substance: IPRATROPIUM BROMIDE
     Dosage: UNK
     Route: 065
  493. ASPIRIN [Concomitant]
     Active Substance: ASPIRIN
     Indication: Ill-defined disorder
     Dosage: UNK
     Route: 048
  494. ASPIRIN [Concomitant]
     Active Substance: ASPIRIN
     Dosage: UNK
     Route: 065
  495. ZOPICLONE [Concomitant]
     Active Substance: ZOPICLONE
     Indication: Ill-defined disorder
     Dosage: UNK
     Route: 048
  496. ZOPICLONE [Concomitant]
     Active Substance: ZOPICLONE
     Dosage: UNK
     Route: 048
  497. ZOPICLONE [Concomitant]
     Active Substance: ZOPICLONE
     Dosage: UNK
     Route: 048
  498. ZOPICLONE [Concomitant]
     Active Substance: ZOPICLONE
     Dosage: UNK
     Route: 048
  499. VANCOMYCIN [Concomitant]
     Active Substance: VANCOMYCIN
     Indication: Ill-defined disorder
     Dosage: 1 G, QD
     Route: 042
  500. VANCOMYCIN [Concomitant]
     Active Substance: VANCOMYCIN
     Dosage: 1 G, QD (1G 1/1DAYS)
     Route: 042
  501. VANCOMYCIN [Concomitant]
     Active Substance: VANCOMYCIN
     Dosage: 1 G, QD
     Route: 042
  502. VANCOMYCIN [Concomitant]
     Active Substance: VANCOMYCIN
     Dosage: 1 G, QD
     Route: 042
  503. MIDODRINE HYDROCHLORIDE [Concomitant]
     Active Substance: MIDODRINE HYDROCHLORIDE
     Indication: Ill-defined disorder
     Dosage: UNK
     Route: 048
  504. MIDODRINE HYDROCHLORIDE [Concomitant]
     Active Substance: MIDODRINE HYDROCHLORIDE
     Dosage: UNK MG
     Route: 048
  505. MIDODRINE HYDROCHLORIDE [Concomitant]
     Active Substance: MIDODRINE HYDROCHLORIDE
     Dosage: UNK
     Route: 048
  506. MIDODRINE HYDROCHLORIDE [Concomitant]
     Active Substance: MIDODRINE HYDROCHLORIDE
     Dosage: UNK
     Route: 048
  507. TRICLOSAN [Concomitant]
     Active Substance: TRICLOSAN
     Indication: Pneumonia
     Dosage: UNK
     Route: 065
     Dates: start: 2006
  508. TRICLOSAN [Concomitant]
     Active Substance: TRICLOSAN
     Indication: Ill-defined disorder
     Dosage: 1 G, QD
     Route: 042
  509. TRICLOSAN [Concomitant]
     Active Substance: TRICLOSAN
     Dosage: UNK
     Route: 065
     Dates: start: 2006
  510. TRICLOSAN [Concomitant]
     Active Substance: TRICLOSAN
     Dosage: UNK
     Route: 065
     Dates: start: 2006
  511. TRICLOSAN [Concomitant]
     Active Substance: TRICLOSAN
     Dosage: 1 G, QD
     Route: 042
  512. TRICLOSAN [Concomitant]
     Active Substance: TRICLOSAN
     Dosage: UNK
     Route: 065
  513. TRICLOSAN [Concomitant]
     Active Substance: TRICLOSAN
     Dosage: UNK
     Route: 065
  514. TRICLOSAN [Concomitant]
     Active Substance: TRICLOSAN
     Dosage: UNK
     Route: 065
  515. TRICLOSAN [Concomitant]
     Active Substance: TRICLOSAN
     Dosage: UNK
     Route: 065
  516. TRICLOSAN [Concomitant]
     Active Substance: TRICLOSAN
     Dosage: 1 G, QD
     Route: 042

REACTIONS (5)
  - Drug hypersensitivity [Unknown]
  - Toxic epidermal necrolysis [Unknown]
  - Product use in unapproved indication [Unknown]
  - Off label use [Unknown]
  - Off label use [Unknown]

NARRATIVE: CASE EVENT DATE: 20060101
